FAERS Safety Report 5084771-X (Version None)
Quarter: 2006Q3

REPORT INFORMATION
  Report Type: 
  Country: None (occurrence: None)
  Receive Date: 20060815
  Receipt Date: 20060727
  Transmission Date: 20061208
  Serious: Yes (Hospitalization)
  Sender: FDA-Public Use
  Company Number: BR200608000820

PATIENT
  Age: 87 Year
  Sex: Female

DRUGS (3)
  1. FORTEO [Suspect]
     Indication: OSTEOPOROSIS
     Dosage: 20 UG, DAILY (1/D), SUBCUTANEOUS
     Route: 058
     Dates: start: 20060721, end: 20060726
  2. FORTEO [Concomitant]
  3. INSULIN [Concomitant]

REACTIONS (8)
  - AMNESIA [None]
  - CONVULSION [None]
  - EAR HAEMORRHAGE [None]
  - HEAD INJURY [None]
  - HYPERTENSION [None]
  - HYPOGLYCAEMIA [None]
  - SYNCOPE [None]
  - VOMITING [None]
